FAERS Safety Report 5668242-5 (Version None)
Quarter: 2008Q1

REPORT INFORMATION
  Report Type: 
  Country: None (occurrence: None)
  Receive Date: 20080315
  Receipt Date: 20080219
  Transmission Date: 20080703
  Serious: No
  Sender: FDA-Public Use
  Company Number: US-ABBOTT-08P-163-0439082-00

PATIENT
  Sex: Female
  Weight: 93.978 kg

DRUGS (4)
  1. HUMIRA [Suspect]
     Indication: PSORIASIS
     Route: 058
     Dates: start: 20080210
  2. HUMIRA [Suspect]
     Indication: PSORIATIC ARTHROPATHY
  3. ANTIDEPRESSANTS [Concomitant]
     Indication: DEPRESSION
     Route: 048
     Dates: start: 20080205
  4. ANTIDEPRESSANTS [Concomitant]
     Route: 048

REACTIONS (1)
  - ACCIDENTAL EXPOSURE [None]
